FAERS Safety Report 7987288-5 (Version None)
Quarter: 2011Q4

REPORT INFORMATION
  Report Type: 
  Country: None (occurrence: None)
  Receive Date: 20111216
  Receipt Date: 20110330
  Transmission Date: 20120403
  Serious: No
  Sender: FDA-Public Use
  Company Number: US-BRISTOL-MYERS SQUIBB COMPANY-15645179

PATIENT
  Age: 62 Year
  Sex: Female

DRUGS (5)
  1. ABILIFY [Suspect]
     Indication: ANXIETY
     Dosage: INCREASED TO 15MG, BEEN ON 7.5 MG STABLE FOR A FEW YEARS
  2. CELEXA [Suspect]
     Dosage: CELEXA 80 MG FOR 13-14 YEARS
  3. GEODON [Suspect]
     Indication: SLEEP DISORDER
     Dosage: 1DF= TAKEN LOW-DOSE (20-40MG) INTERMITTENTLY.
  4. GEODON [Suspect]
     Indication: ANXIETY
     Dosage: 1DF= TAKEN LOW-DOSE (20-40MG) INTERMITTENTLY.
  5. ABILIFY [Suspect]
     Indication: DEPRESSION
     Dosage: INCREASED TO 15MG, BEEN ON 7.5 MG STABLE FOR A FEW YEARS

REACTIONS (1)
  - DYSKINESIA [None]
